FAERS Safety Report 18217656 (Version 1)
Quarter: 2020Q3

REPORT INFORMATION
  Report Type: Spontaneous
  Country: IN (occurrence: IN)
  Receive Date: 20200901
  Receipt Date: 20200901
  Transmission Date: 20201103
  Serious: Yes (Death, Hospitalization)
  Sender: FDA-Public Use
  Company Number: IN-MYLANLABS-2020M1075410

PATIENT
  Age: 58 Year
  Sex: Male

DRUGS (6)
  1. BASILIXIMAB [Suspect]
     Active Substance: BASILIXIMAB
     Indication: IMMUNOSUPPRESSANT DRUG THERAPY
     Dosage: INDUCTION THERAPY ON POSTOPERATIVE DAY 1
     Route: 065
     Dates: start: 2016
  2. TACROLIMUS. [Suspect]
     Active Substance: TACROLIMUS
     Indication: IMMUNOSUPPRESSANT DRUG THERAPY
     Dosage: ON POSTOPERATIVE DAY 1
     Route: 065
     Dates: start: 2016
  3. BASILIXIMAB [Suspect]
     Active Substance: BASILIXIMAB
     Dosage: SECOND DOSE ON POSTOPERATIVE DAY 5
     Route: 065
     Dates: start: 2016
  4. AZATHIOPRINE. [Suspect]
     Active Substance: AZATHIOPRINE
     Indication: IMMUNOSUPPRESSANT DRUG THERAPY
     Dosage: ON POSTOPERATIVE DAY 1
     Route: 065
     Dates: start: 2016
  5. PIPERACILLIN/TAZOBACTAM [Concomitant]
     Active Substance: PIPERACILLIN SODIUM\TAZOBACTAM SODIUM
     Indication: PRODUCT USED FOR UNKNOWN INDICATION
     Route: 065
     Dates: start: 2016
  6. FLUCONAZOLE. [Concomitant]
     Active Substance: FLUCONAZOLE
     Indication: PRODUCT USED FOR UNKNOWN INDICATION
     Route: 065
     Dates: start: 2016

REACTIONS (8)
  - Cardiac arrest [Fatal]
  - Complications of transplanted liver [Fatal]
  - Multiple organ dysfunction syndrome [Fatal]
  - Condition aggravated [Fatal]
  - Encephalitis [Fatal]
  - Dengue fever [Fatal]
  - Depressed level of consciousness [Fatal]
  - Complications of transplanted kidney [Fatal]
